FAERS Safety Report 7028711-2 (Version None)
Quarter: 2010Q4

REPORT INFORMATION
  Report Type: 
  Country: None (occurrence: None)
  Receive Date: 20101005
  Receipt Date: 20100930
  Transmission Date: 20110411
  Serious: Yes (Hospitalization)
  Sender: FDA-Public Use
  Company Number: BE-MEDIMMUNE-MEDI-0011565

PATIENT
  Sex: Female
  Weight: 1.75 kg

DRUGS (1)
  1. SYNAGIS [Suspect]
     Route: 030
     Dates: start: 20100105, end: 20100105

REACTIONS (2)
  - ATELECTASIS [None]
  - RESPIRATORY SYNCYTIAL VIRUS BRONCHIOLITIS [None]
